FAERS Safety Report 25923105 (Version 1)
Quarter: 2025Q4

REPORT INFORMATION
  Report Type: Spontaneous
  Country: GB (occurrence: GB)
  Receive Date: 20251015
  Receipt Date: 20251015
  Transmission Date: 20260118
  Serious: Yes (Hospitalization)
  Sender: EMD SERONO INC
  Company Number: GB-Merck Healthcare KGaA-2025049436

PATIENT
  Sex: Female

DRUGS (1)
  1. REBIF [Suspect]
     Active Substance: INTERFERON BETA-1A
     Indication: Multiple sclerosis

REACTIONS (4)
  - Portal shunt procedure [Unknown]
  - Surgery [Recovering/Resolving]
  - Sleep disorder [Unknown]
  - Incontinence [Unknown]
